FAERS Safety Report 4620983-4 (Version None)
Quarter: 2005Q2

REPORT INFORMATION
  Report Type: 
  Country: None (occurrence: None)
  Receive Date: 20050318
  Receipt Date: 20050202
  Transmission Date: 20051028
  Serious: Yes (Other)
  Sender: FDA-Public Use
  Company Number: 2005024932

PATIENT
  Age: 34 Year
  Sex: Male
  Weight: 75 kg

DRUGS (8)
  1. VORICONAZOLE (VORICONAZOLE) [Suspect]
     Indication: FEBRILE NEUTROPENIA
     Dosage: 900 MG (450 MG, 2 IN 1 D), INTRAVENOUS; 600 MG (300 MG, 2 IN 1 D), INTRAVENOUS
     Route: 042
     Dates: start: 20041124, end: 20041125
  2. VORICONAZOLE (VORICONAZOLE) [Suspect]
     Indication: FEBRILE NEUTROPENIA
     Dosage: 900 MG (450 MG, 2 IN 1 D), INTRAVENOUS; 600 MG (300 MG, 2 IN 1 D), INTRAVENOUS
     Route: 042
     Dates: start: 20041126, end: 20041126
  3. AZITHROMYCIN [Concomitant]
  4. CEFEPIME (CEFEPIME) [Concomitant]
  5. BACTRIM [Concomitant]
  6. ATORVATASTATIN (ATORVASTATIN) [Concomitant]
  7. LORAZEPAM [Concomitant]
  8. METOPROLOL TARTRATE [Concomitant]

REACTIONS (3)
  - BLOOD CREATININE INCREASED [None]
  - HALLUCINATION, AUDITORY [None]
  - HALLUCINATION, VISUAL [None]
